FAERS Safety Report 5330615-8 (Version None)
Quarter: 2007Q2

REPORT INFORMATION
  Report Type: 
  Country: None (occurrence: None)
  Receive Date: 20070516
  Receipt Date: 20070511
  Transmission Date: 20071010
  Serious: Yes (Death, Hospitalization)
  Sender: FDA-Public Use
  Company Number: 066-C5013-07050614

PATIENT
  Age: 55 Year
  Sex: Female

DRUGS (3)
  1. CC-5013 (LENALIDOMIDE) (CAPSULES) [Suspect]
     Indication: MULTIPLE MYELOMA
     Dosage: DAILY, ORAL, 25 MG, EVERY OTHER DAY, ORAL
     Route: 048
     Dates: start: 20070226, end: 20070305
  2. CC-5013 (LENALIDOMIDE) (CAPSULES) [Suspect]
     Indication: MULTIPLE MYELOMA
     Dosage: DAILY, ORAL, 25 MG, EVERY OTHER DAY, ORAL
     Route: 048
     Dates: start: 20070327, end: 20070404
  3. DEXAMETHASONE TAB [Concomitant]

REACTIONS (7)
  - ANAEMIA [None]
  - CAPILLARY LEAK SYNDROME [None]
  - GENERAL PHYSICAL HEALTH DETERIORATION [None]
  - JAUNDICE [None]
  - NON-CARDIOGENIC PULMONARY OEDEMA [None]
  - PYREXIA [None]
  - RENAL IMPAIRMENT [None]
